FAERS Safety Report 22379035 (Version 1)
Quarter: 2023Q2

REPORT INFORMATION
  Report Type: Spontaneous
  Country: DE (occurrence: DE)
  Receive Date: 20230529
  Receipt Date: 20230529
  Transmission Date: 20230721
  Serious: Yes (Other)
  Sender: FDA-Public Use
  Company Number: DE-BAXTER-2023BAX022766

PATIENT

DRUGS (22)
  1. DOXORUBICIN [Suspect]
     Active Substance: DOXORUBICIN
     Indication: Plasma cell myeloma refractory
     Dosage: MOST RECENT LINE TREATMENT
     Route: 065
     Dates: start: 20220614, end: 20230421
  2. CYCLOPHOSPHAMIDE [Suspect]
     Active Substance: CYCLOPHOSPHAMIDE
     Indication: Plasma cell myeloma refractory
     Dosage: AS A PART OF FIRST LINE TREATMENT
     Route: 065
     Dates: start: 20170612, end: 20171001
  3. CYCLOPHOSPHAMIDE [Suspect]
     Active Substance: CYCLOPHOSPHAMIDE
     Dosage: AS A PART OF SIXTH LINE TREATMENT
     Route: 065
     Dates: start: 20210107, end: 20210315
  4. CYCLOPHOSPHAMIDE [Suspect]
     Active Substance: CYCLOPHOSPHAMIDE
     Dosage: MOST RECENT LINE TREATMENT
     Route: 065
     Dates: start: 20220614, end: 20230421
  5. BORTEZOMIB [Suspect]
     Active Substance: BORTEZOMIB
     Indication: Plasma cell myeloma refractory
     Dosage: AS A PART OF FIRST LINE TREATMENT
     Route: 065
     Dates: start: 20170612, end: 20171001
  6. LENALIDOMIDE [Suspect]
     Active Substance: LENALIDOMIDE
     Indication: Plasma cell myeloma refractory
     Dosage: AS A PART OF FIRST LINE TREATMENT
     Route: 065
     Dates: start: 20170612, end: 20171001
  7. LENALIDOMIDE [Suspect]
     Active Substance: LENALIDOMIDE
     Dosage: AS A PART OF FIFTH LINE TREATMENT
     Route: 065
     Dates: start: 20201001, end: 20210102
  8. DEXAMETHASONE [Suspect]
     Active Substance: DEXAMETHASONE
     Indication: Plasma cell myeloma refractory
     Dosage: AS A PART OF FIRST LINE TREATMENT
     Route: 065
     Dates: start: 20170612, end: 20171001
  9. DEXAMETHASONE [Suspect]
     Active Substance: DEXAMETHASONE
     Dosage: AS A PART OF SECOND LINE TREATMENT
     Route: 065
     Dates: start: 20180301, end: 20181001
  10. DEXAMETHASONE [Suspect]
     Active Substance: DEXAMETHASONE
     Dosage: AS A PART OF THIRD LINE TREATMENT
     Route: 065
     Dates: start: 20181013, end: 20191024
  11. DEXAMETHASONE [Suspect]
     Active Substance: DEXAMETHASONE
     Dosage: AS A PART OF FOURTH LINE TREATMENT
     Route: 065
     Dates: start: 20191106, end: 20201001
  12. DEXAMETHASONE [Suspect]
     Active Substance: DEXAMETHASONE
     Dosage: AS A PART OF FIFTH LINE TREATMENT
     Route: 065
     Dates: start: 20201001, end: 20210102
  13. DEXAMETHASONE [Suspect]
     Active Substance: DEXAMETHASONE
     Dosage: AS A PART OF SIXTH LINE TREATMENT
     Route: 065
     Dates: start: 20210107, end: 20210315
  14. DEXAMETHASONE [Suspect]
     Active Substance: DEXAMETHASONE
     Dosage: MOST RECENT LINE TREATMENT
     Route: 065
     Dates: start: 20220614, end: 20230421
  15. POMALIDOMIDE [Suspect]
     Active Substance: POMALIDOMIDE
     Indication: Plasma cell myeloma refractory
     Dosage: AS A PART OF THIRD LINE TREATMENT
     Route: 065
     Dates: start: 20181013, end: 20191024
  16. ELOTUZUMAB [Suspect]
     Active Substance: ELOTUZUMAB
     Indication: Plasma cell myeloma refractory
     Dosage: AS A PART OF THIRD LINE TREATMENT
     Route: 065
     Dates: start: 20181013, end: 20191024
  17. IXAZOMIB [Suspect]
     Active Substance: IXAZOMIB
     Indication: Plasma cell myeloma refractory
     Dosage: AS A PART OF SECOND LINE TREATMENT
     Route: 065
     Dates: start: 20180301, end: 20181001
  18. DARATUMUMAB [Suspect]
     Active Substance: DARATUMUMAB
     Indication: Plasma cell myeloma refractory
     Dosage: AS A PART OF FIFTH LINE TREATMENT
     Route: 065
     Dates: start: 20201001, end: 20210102
  19. DARATUMUMAB [Suspect]
     Active Substance: DARATUMUMAB
     Dosage: AS A PART OF SIXTH LINE TREATMENT
     Route: 065
     Dates: start: 20210107, end: 20210315
  20. DARATUMUMAB [Suspect]
     Active Substance: DARATUMUMAB
     Dosage: MOST RECENT LINE TREATMENT
     Route: 065
     Dates: start: 20220614, end: 20230421
  21. CARFILZOMIB [Suspect]
     Active Substance: CARFILZOMIB
     Indication: Plasma cell myeloma refractory
     Dosage: AS A PART OF SIXTH LINE TREATMENT
     Route: 065
     Dates: start: 20210107, end: 20210315
  22. CARFILZOMIB [Suspect]
     Active Substance: CARFILZOMIB
     Dosage: MOST RECENT LINE TREATMENT
     Route: 065
     Dates: start: 20220614, end: 20230421

REACTIONS (1)
  - Plasma cell myeloma [Unknown]
